FAERS Safety Report 8155978-X (Version None)
Quarter: 2012Q1

REPORT INFORMATION
  Report Type: 
  Country: None (occurrence: None)
  Receive Date: 20120222
  Receipt Date: 20120213
  Transmission Date: 20120608
  Serious: Yes (Hospitalization, Other)
  Sender: FDA-Public Use
  Company Number: US-VIROPHARMA INCORPORATED-20110809CINRY2179

PATIENT
  Sex: Female

DRUGS (3)
  1. ANTIEMETICS [Concomitant]
     Indication: NAUSEA
     Dosage: UNKNOWN
  2. CINRYZE [Suspect]
     Indication: HEREDITARY ANGIOEDEMA
     Dates: start: 20110802
  3. FLU SHOT [Concomitant]
     Indication: ANTIVIRAL PROPHYLAXIS
     Dosage: UNKNOWN
     Route: 065
     Dates: start: 20110914, end: 20110914

REACTIONS (8)
  - MATERNAL EXPOSURE DURING PREGNANCY [None]
  - INFUSION RELATED REACTION [None]
  - OLIGOHYDRAMNIOS [None]
  - NASOPHARYNGITIS [None]
  - NAUSEA [None]
  - ABDOMINAL DISCOMFORT [None]
  - HEREDITARY ANGIOEDEMA [None]
  - VOMITING [None]
